FAERS Safety Report 25524079 (Version 1)
Quarter: 2025Q2

REPORT INFORMATION
  Report Type: Spontaneous
  Country: US (occurrence: None)
  Receive Date: 20250627
  Receipt Date: 20250627
  Transmission Date: 20250717
  Serious: Yes (Hospitalization)
  Sender: FDA-CTU
  Company Number: None

PATIENT
  Age: 48 Year
  Sex: Male
  Weight: 57.8 kg

DRUGS (2)
  1. NOGAPENDEKIN ALFA INBAKICEPT-PMLN [Suspect]
     Active Substance: NOGAPENDEKIN ALFA INBAKICEPT-PMLN
     Indication: Renal cell carcinoma
     Dosage: OTHER QUANTITY : N-803;?FREQUENCY : WEEKLY;?
     Route: 058
     Dates: start: 20250609, end: 20250616
  2. REMERON [Suspect]
     Active Substance: MIRTAZAPINE

REACTIONS (5)
  - Mental status changes [None]
  - Confusional state [None]
  - Blood creatinine increased [None]
  - Hyponatraemia [None]
  - Therapy cessation [None]

NARRATIVE: CASE EVENT DATE: 20250622
